FAERS Safety Report 5235864-5 (Version None)
Quarter: 2007Q1

REPORT INFORMATION
  Report Type: 
  Country: None (occurrence: None)
  Receive Date: 20061208
  Receipt Date: 20051130
  Transmission Date: 20070707
  Serious: Yes (Other)
  Sender: FDA-Public Use
  Company Number: 2005UW18013

PATIENT
  Sex: Female

DRUGS (2)
  1. CRESTOR [Suspect]
     Dosage: 10 MG PO
     Route: 048
     Dates: start: 20050101, end: 20050101
  2. CRESTOR [Suspect]
     Dosage: 10 MG PO
     Route: 048
     Dates: start: 20050101

REACTIONS (3)
  - BONE PAIN [None]
  - DYSPNOEA [None]
  - PAIN IN EXTREMITY [None]
